FAERS Safety Report 21304368 (Version 1)
Quarter: 2022Q3

REPORT INFORMATION
  Report Type: Spontaneous
  Country: US (occurrence: None)
  Receive Date: 20220907
  Receipt Date: 20220907
  Transmission Date: 20221026
  Serious: No
  Sender: FDA-Public Use
  Company Number: US-ARIS GLOBAL-202108-1312

PATIENT
  Sex: Female

DRUGS (27)
  1. OXERVATE [Suspect]
     Active Substance: CENEGERMIN-BKBJ
     Indication: Neurotrophic keratopathy
     Route: 047
     Dates: start: 20210719
  2. PREDNISONE [Concomitant]
     Active Substance: PREDNISONE
     Dosage: DOUBLE STRENGTH PACKAGE
  3. POTASSIUM [Concomitant]
     Active Substance: POTASSIUM
     Dosage: 600(99) MG
  4. CODEINE\PROMETHAZINE [Concomitant]
     Active Substance: CODEINE\PROMETHAZINE
  5. OMEPRAZOLE [Concomitant]
     Active Substance: OMEPRAZOLE
     Dosage: DELAYED RELEASE CAPSULE
  6. NYSTATIN [Concomitant]
     Active Substance: NYSTATIN
  7. LEXAPRO [Concomitant]
     Active Substance: ESCITALOPRAM OXALATE
  8. LASIX [Concomitant]
     Active Substance: FUROSEMIDE
  9. KLONOPIN [Concomitant]
     Active Substance: CLONAZEPAM
  10. FLONASE ALLERGY RELIEF [Concomitant]
     Active Substance: FLUTICASONE PROPIONATE
  11. EEMT H.S. [Concomitant]
     Active Substance: ESTRONE SODIUM SULFATE\METHYLTESTOSTERONE
     Dosage: 0.625-1.25
  12. DESONIDE [Concomitant]
     Active Substance: DESONIDE
  13. CORTISONE [Concomitant]
     Active Substance: CORTISONE
  14. SYMBICORT [Concomitant]
     Active Substance: BUDESONIDE\FORMOTEROL FUMARATE DIHYDRATE
     Dosage: 160-4.5 MCG
  15. ATENOLOL [Concomitant]
     Active Substance: ATENOLOL
  16. ASPIRIN [Concomitant]
     Active Substance: ASPIRIN
  17. ACID REDUCER [Concomitant]
     Active Substance: ESOMEPRAZOLE MAGNESIUM
  18. ACYCLOVIR [Concomitant]
     Active Substance: ACYCLOVIR
  19. ZYRTEC [Concomitant]
     Active Substance: CETIRIZINE HYDROCHLORIDE
  20. ZOLPIDEM TARTRATE [Concomitant]
     Active Substance: ZOLPIDEM TARTRATE
  21. XANAX [Concomitant]
     Active Substance: ALPRAZOLAM
  22. CODEINE SULFATE [Concomitant]
     Active Substance: CODEINE SULFATE
  23. TRIFLURIDINE [Concomitant]
     Active Substance: TRIFLURIDINE
  24. TRIAMCINOLONE ACETONIDE [Concomitant]
     Active Substance: TRIAMCINOLONE ACETONIDE
  25. TOBRAMYCIN [Concomitant]
     Active Substance: TOBRAMYCIN
     Dosage: 300 MG/4ML AMPULE
  26. SALINE NASAL [Concomitant]
     Active Substance: SODIUM CHLORIDE
  27. ROSUVASTATIN CALCIUM [Concomitant]
     Active Substance: ROSUVASTATIN CALCIUM

REACTIONS (6)
  - Eye pain [Not Recovered/Not Resolved]
  - Vision blurred [Not Recovered/Not Resolved]
  - Eye irritation [Not Recovered/Not Resolved]
  - Lacrimation increased [Not Recovered/Not Resolved]
  - Photophobia [Not Recovered/Not Resolved]
  - Abdominal discomfort [Not Recovered/Not Resolved]
